FAERS Safety Report 8584238-8 (Version None)
Quarter: 2012Q3

REPORT INFORMATION
  Report Type: 
  Country: None (occurrence: None)
  Receive Date: 20120810
  Receipt Date: 20120803
  Transmission Date: 20120928
  Serious: Yes (Death)
  Sender: FDA-Public Use
  Company Number: AU-BRISTOL-MYERS SQUIBB COMPANY-16838120

PATIENT

DRUGS (1)
  1. ORENCIA [Suspect]

REACTIONS (1)
  - DEATH [None]
